FAERS Safety Report 8769294 (Version 3)
Quarter: 2012Q4

REPORT INFORMATION
  Report Type: Report from Study
  Country: DE (occurrence: DE)
  Receive Date: 20120904
  Receipt Date: 20121031
  Transmission Date: 20130627
  Serious: Yes (Death, Life-Threatening, Hospitalization, Other)
  Sender: FDA-Public Use
  Company Number: DE-INCYTE CORPORATION-2012IN000922

PATIENT
  Age: 70 Year
  Sex: Female
  Weight: 61 kg

DRUGS (1)
  1. INC424 [Suspect]
     Dosage: 30 mg, tid
     Route: 048
     Dates: start: 20120307, end: 20120521

REACTIONS (8)
  - Pancytopenia [Fatal]
  - Neutropenia [Recovered/Resolved]
  - Overdose [Recovered/Resolved]
  - Corynebacterium infection [Unknown]
  - Azotaemia [Fatal]
  - Renal failure acute [Fatal]
  - Acute myeloid leukaemia [Fatal]
  - Pneumonia [Recovered/Resolved]
